FAERS Safety Report 16394144 (Version 1)
Quarter: 2019Q2

REPORT INFORMATION
  Report Type: Spontaneous
  Country: JP (occurrence: JP)
  Receive Date: 20190605
  Receipt Date: 20190605
  Transmission Date: 20190711
  Serious: Yes (Death, Other)
  Sender: FDA-Public Use
  Company Number: JP-PFIZER INC-2019127645

PATIENT
  Age: 68 Year
  Sex: Male

DRUGS (2)
  1. LYRICA [Suspect]
     Active Substance: PREGABALIN
     Indication: HYPOAESTHESIA
     Dosage: UNK
     Route: 048
  2. ADONA [Concomitant]
     Dosage: UNK, 3X/DAY
     Route: 048

REACTIONS (7)
  - Neoplasm progression [Fatal]
  - Salivary gland disorder [Unknown]
  - Productive cough [Unknown]
  - Increased appetite [Unknown]
  - Somnolence [Unknown]
  - Asthenia [Unknown]
  - Anger [Unknown]
